FAERS Safety Report 7775536-6 (Version None)
Quarter: 2011Q3

REPORT INFORMATION
  Report Type: 
  Country: None (occurrence: None)
  Receive Date: 20110923
  Receipt Date: 20110919
  Transmission Date: 20111222
  Serious: Yes (Other)
  Sender: FDA-Public Use
  Company Number: EE-GENENTECH-323583

PATIENT
  Sex: Female
  Weight: 55.3 kg

DRUGS (4)
  1. MABTHERA [Suspect]
     Indication: JUVENILE ARTHRITIS
     Dosage: 500 MG, UNK
     Route: 042
     Dates: start: 20090724, end: 20110728
  2. CELEBREX [Concomitant]
     Indication: JUVENILE ARTHRITIS
     Dosage: UNK
  3. METHOTREXATE [Concomitant]
     Indication: JUVENILE ARTHRITIS
     Dosage: 12.5 MG, 1/WEEK
     Route: 048
  4. CALCIGRAN [Concomitant]
     Indication: PRODUCT USED FOR UNKNOWN INDICATION
     Dosage: UNK

REACTIONS (1)
  - EOSINOPHILIA [None]
